FAERS Safety Report 5306669-1 (Version None)
Quarter: 2007Q2

REPORT INFORMATION
  Report Type: 
  Country: None (occurrence: None)
  Receive Date: 20070424
  Receipt Date: 20070413
  Transmission Date: 20071010
  Serious: Yes (Other)
  Sender: FDA-Public Use
  Company Number: US-PFIZER INC-2007030382

PATIENT
  Sex: Female

DRUGS (8)
  1. DILANTIN [Suspect]
     Indication: CONVULSION
  2. SYNTHROID [Concomitant]
  3. AMIODARONE [Concomitant]
  4. CARDIZEM [Concomitant]
  5. POTASSIUM ACETATE [Concomitant]
  6. PROTONIX [Concomitant]
  7. CALCIUM [Concomitant]
  8. EFFEXOR [Concomitant]

REACTIONS (7)
  - AGITATION [None]
  - CONFUSIONAL STATE [None]
  - DRUG INEFFECTIVE [None]
  - DRUG WITHDRAWAL SYNDROME [None]
  - FEELING ABNORMAL [None]
  - MANIA [None]
  - SPEECH DISORDER [None]
